FAERS Safety Report 20920980 (Version 2)
Quarter: 2022Q2

REPORT INFORMATION
  Report Type: Spontaneous
  Country: JP (occurrence: JP)
  Receive Date: 20220606
  Receipt Date: 20220628
  Transmission Date: 20220720
  Serious: Yes (Death, Other)
  Sender: FDA-Public Use
  Company Number: JP-002147023-NVSJ2022JP090917

PATIENT

DRUGS (2)
  1. RUXOLITINIB [Suspect]
     Active Substance: RUXOLITINIB
     Indication: Primary myelofibrosis
     Dosage: 10 MG
     Route: 048
     Dates: start: 202009, end: 202103
  2. PREDONINE [Suspect]
     Active Substance: PREDNISOLONE
     Indication: Cellulitis
     Dosage: UNK
     Route: 065

REACTIONS (3)
  - Femur fracture [Recovered/Resolved]
  - Pneumonia viral [Fatal]
  - Cellulitis [Recovered/Resolved]

NARRATIVE: CASE EVENT DATE: 20210101
